FAERS Safety Report 6524918-9 (Version None)
Quarter: 2010Q1

REPORT INFORMATION
  Report Type: 
  Country: None (occurrence: None)
  Receive Date: 20100104
  Receipt Date: 20091222
  Transmission Date: 20100710
  Serious: Yes (Hospitalization, Disabling, Other)
  Sender: FDA-Public Use
  Company Number: US-PFIZER INC-2009314090

PATIENT
  Sex: Male
  Weight: 79.4 kg

DRUGS (3)
  1. ACCUPRIL [Suspect]
     Indication: HYPERTENSION
     Dosage: 40 MG, DAILY
     Route: 048
  2. COUMADIN [Concomitant]
     Indication: HEART VALVE REPLACEMENT
  3. ASPIRIN [Concomitant]

REACTIONS (3)
  - HEART VALVE REPLACEMENT [None]
  - MULTIPLE SCLEROSIS [None]
  - WALKING DISABILITY [None]
